FAERS Safety Report 10658516 (Version 1)
Quarter: 2014Q4

REPORT INFORMATION
  Report Type: Spontaneous
  Country: US (occurrence: US)
  Receive Date: 20141217
  Receipt Date: 20141217
  Transmission Date: 20150529
  Serious: No
  Sender: FDA-Public Use
  Company Number: US-GLAXOSMITHKLINE-A1068376A

PATIENT

DRUGS (1)
  1. VOTRIENT [Suspect]
     Active Substance: PAZOPANIB HYDROCHLORIDE
     Indication: LEIOMYOSARCOMA
     Route: 048

REACTIONS (4)
  - Arthralgia [Unknown]
  - Nausea [Unknown]
  - Viral infection [Unknown]
  - Decreased appetite [Unknown]
